FAERS Safety Report 8323162-2 (Version None)
Quarter: 2012Q2

REPORT INFORMATION
  Report Type: 
  Country: None (occurrence: None)
  Receive Date: 20120430
  Receipt Date: 20120416
  Transmission Date: 20120825
  Serious: No
  Sender: FDA-Public Use
  Company Number: US-ENDO PHARMACEUTICALS INC.-OPER20120534

PATIENT
  Sex: Female
  Weight: 37.228 kg

DRUGS (2)
  1. OPANA ER [Suspect]
     Indication: PAIN
     Route: 048
     Dates: start: 20111101
  2. OPANA ER [Suspect]
     Route: 048
     Dates: end: 20111101

REACTIONS (1)
  - DRUG INEFFECTIVE [None]
